FAERS Safety Report 8122175-3 (Version None)
Quarter: 2012Q1

REPORT INFORMATION
  Report Type: 
  Country: None (occurrence: None)
  Receive Date: 20120208
  Receipt Date: 20120127
  Transmission Date: 20120608
  Serious: Yes (Death)
  Sender: FDA-Public Use
  Company Number: US-ROCHE-1027294

PATIENT
  Sex: Male
  Weight: 95.681 kg

DRUGS (12)
  1. ALPRAZOLAM [Concomitant]
  2. HYDROXYZINE [Concomitant]
  3. LACTULOSE [Concomitant]
     Indication: HEPATIC ENCEPHALOPATHY
     Route: 048
  4. NEUPOGEN [Concomitant]
  5. DOXYCYCLINE [Concomitant]
  6. PEGASYS [Suspect]
     Indication: HEPATITIS C
     Dosage: DOSE: 180
     Route: 058
     Dates: start: 20110801
  7. XIFAXAN [Concomitant]
     Indication: HEPATIC ENCEPHALOPATHY
     Route: 048
  8. COPEGUS [Suspect]
     Indication: HEPATITIS C
     Route: 048
     Dates: start: 20110801
  9. LASIX [Concomitant]
     Indication: OEDEMA
     Route: 048
  10. PROMETHAZINE [Concomitant]
  11. INCIVEK [Suspect]
     Indication: HEPATITIS C
     Route: 048
     Dates: start: 20110812, end: 20111107
  12. AMITRIPTYLINE HCL [Concomitant]

REACTIONS (3)
  - LEUKAEMIA [None]
  - RASH [None]
  - SHOCK [None]
